FAERS Safety Report 22817701 (Version 2)
Quarter: 2023Q4

REPORT INFORMATION
  Report Type: Spontaneous
  Country: BE (occurrence: BE)
  Receive Date: 20230813
  Receipt Date: 20231019
  Transmission Date: 20240109
  Serious: Yes (Hospitalization)
  Sender: FDA-Public Use
  Company Number: BE-BEH-2023161913

PATIENT
  Weight: 3.2 kg

DRUGS (1)
  1. HAEMATE P [Suspect]
     Active Substance: ANTIHEMOPHILIC FACTOR HUMAN
     Route: 064

REACTIONS (6)
  - Oxygen saturation decreased [Recovering/Resolving]
  - Foetal exposure during pregnancy [Recovering/Resolving]
  - Neonatal dyspnoea [Recovering/Resolving]
  - Foetal exposure during pregnancy [Recovering/Resolving]
  - Blood bilirubin increased [Recovering/Resolving]
  - Foetal exposure during pregnancy [Recovering/Resolving]
